FAERS Safety Report 6692508-3 (Version None)
Quarter: 2010Q2

REPORT INFORMATION
  Report Type: 
  Country: None (occurrence: None)
  Receive Date: 20100422
  Receipt Date: 20100413
  Transmission Date: 20101027
  Serious: Yes (Death)
  Sender: FDA-Public Use
  Company Number: B0647047A

PATIENT

DRUGS (4)
  1. COMBIVIR [Suspect]
  2. VIRAMUNE [Suspect]
  3. SUSTIVA [Concomitant]
  4. BACTRIM [Concomitant]

REACTIONS (5)
  - ASCITES [None]
  - DRUG EXPOSURE DURING PREGNANCY [None]
  - FOETAL ARRHYTHMIA [None]
  - INTRA-UTERINE DEATH [None]
  - PULMONARY HYPOPLASIA [None]
